FAERS Safety Report 7568002-4 (Version None)
Quarter: 2011Q2

REPORT INFORMATION
  Report Type: 
  Country: None (occurrence: None)
  Receive Date: 20110616
  Receipt Date: 20110201
  Transmission Date: 20111010
  Serious: Yes (Congenital Anomaly)
  Sender: FDA-Public Use
  Company Number: FK201100119

PATIENT

DRUGS (5)
  1. DACARBAZINE [Suspect]
     Indication: HODGKIN'S DISEASE
     Dosage: TRANSPLACENTAL
     Route: 064
  2. VINCRISTINE [Suspect]
     Indication: HODGKIN'S DISEASE
     Dosage: TRANSPLACENTAL
     Route: 064
  3. DACARBAZINE [Suspect]
     Indication: HODGKIN'S DISEASE
     Dosage: TRANSPLACENTAL
     Route: 064
  4. ADRIAMYCIN PFS [Suspect]
     Indication: HODGKIN'S DISEASE
     Dosage: TRANSPLACENTAL
     Route: 064
  5. BLEOMYCIN FOR INJECTRION USP ( BLEOMYCIN) (BLEOMYCIN) [Suspect]
     Indication: HODGKIN'S DISEASE
     Dosage: TRANSPLACENTAL
     Route: 064

REACTIONS (3)
  - PREMATURE BABY [None]
  - FOETAL GROWTH RESTRICTION [None]
  - MATERNAL DRUGS AFFECTING FOETUS [None]
